FAERS Safety Report 7031650-4 (Version None)
Quarter: 2010Q4

REPORT INFORMATION
  Report Type: 
  Country: None (occurrence: None)
  Receive Date: 20101006
  Receipt Date: 20101006
  Transmission Date: 20110411
  Serious: Yes (Hospitalization, Other)
  Sender: FDA-Public Use
  Company Number: None

PATIENT
  Age: 29 Year
  Sex: Male
  Weight: 117.9352 kg

DRUGS (1)
  1. ZANTAC 150 [Suspect]
     Indication: DYSPEPSIA

REACTIONS (9)
  - ERYTHEMA [None]
  - EYE SWELLING [None]
  - FEELING HOT [None]
  - HYPERHIDROSIS [None]
  - OCULAR HYPERAEMIA [None]
  - PRODUCT QUALITY ISSUE [None]
  - PRURITUS [None]
  - SWELLING FACE [None]
  - VOMITING [None]
